FAERS Safety Report 7792796-6 (Version None)
Quarter: 2011Q4

REPORT INFORMATION
  Report Type: 
  Country: None (occurrence: None)
  Receive Date: 20111003
  Receipt Date: 20110928
  Transmission Date: 20120403
  Serious: Yes (Hospitalization)
  Sender: FDA-Public Use
  Company Number: US-GLAXOSMITHKLINE-A0843821A

PATIENT
  Age: 54 Year
  Sex: Male
  Weight: 81 kg

DRUGS (9)
  1. LIPITOR [Concomitant]
  2. ALLOPURINOL [Concomitant]
  3. RENAGEL [Concomitant]
  4. METOPROLOL TARTRATE [Concomitant]
  5. AVANDIA [Suspect]
     Indication: TYPE 2 DIABETES MELLITUS
     Dosage: 4MG PER DAY
     Route: 048
     Dates: end: 20071201
  6. HEMODIALYSIS [Concomitant]
  7. CPAP [Concomitant]
  8. FLONASE [Concomitant]
  9. INDOMETHACIN [Concomitant]

REACTIONS (5)
  - LUNG DISORDER [None]
  - MYOCARDIAL INFARCTION [None]
  - HEART RATE INCREASED [None]
  - WEIGHT DECREASED [None]
  - ATRIAL FIBRILLATION [None]
